FAERS Safety Report 19698032 (Version 10)
Quarter: 2023Q4

REPORT INFORMATION
  Report Type: Report from Study
  Country: US (occurrence: US)
  Receive Date: 20210812
  Receipt Date: 20231220
  Transmission Date: 20240109
  Serious: Yes (Other)
  Sender: FDA-Public Use
  Company Number: US-ABBVIE-21K-163-3949477-00

PATIENT
  Age: 73 Year
  Sex: Male

DRUGS (3)
  1. HUMIRA [Suspect]
     Active Substance: ADALIMUMAB
     Indication: Psoriasis
     Dosage: CITRATE FREE?FORM STRENGTH: 40 MG
     Route: 058
     Dates: start: 20200409, end: 20210522
  2. HUMIRA [Suspect]
     Active Substance: ADALIMUMAB
     Indication: Psoriatic arthropathy
     Dosage: CITRATE FREE?FORM STRENGTH: 40 MG
     Route: 058
  3. HUMIRA [Suspect]
     Active Substance: ADALIMUMAB
     Dosage: CITRATE FREE 40 MG STRENGTH
     Route: 058
     Dates: start: 20200319

REACTIONS (21)
  - Skin cancer [Not Recovered/Not Resolved]
  - Micturition disorder [Unknown]
  - Cardiac disorder [Unknown]
  - Back pain [Not Recovered/Not Resolved]
  - Vascular stent occlusion [Unknown]
  - Brain hypoxia [Unknown]
  - Cerebral hypoperfusion [Unknown]
  - Deep vein thrombosis [Unknown]
  - Knee arthroplasty [Unknown]
  - Hypoaesthesia [Unknown]
  - Myocardial infarction [Unknown]
  - Mass [Unknown]
  - Micturition urgency [Unknown]
  - Abdominal hernia [Unknown]
  - Orchitis noninfective [Unknown]
  - Orthostatic hypotension [Unknown]
  - Scoliosis [Unknown]
  - Acne [Unknown]
  - Pruritus [Unknown]
  - Coronary arterial stent insertion [Unknown]
  - Apparent death [Recovered/Resolved]

NARRATIVE: CASE EVENT DATE: 20210129
